FAERS Safety Report 11055020 (Version 1)
Quarter: 2015Q2

REPORT INFORMATION
  Report Type: Spontaneous
  Country: US (occurrence: US)
  Receive Date: 20150422
  Receipt Date: 20150422
  Transmission Date: 20150821
  Serious: No
  Sender: FDA-Public Use
  Company Number: US-SA-2014SA078992

PATIENT
  Age: 67 Year
  Sex: Female

DRUGS (1)
  1. ENOXAPARIN SODIUM. [Suspect]
     Active Substance: ENOXAPARIN SODIUM
     Indication: COAGULOPATHY
     Dosage: DOSE:100 MILLIGRAM(S)/MILLILITRE
     Route: 065
     Dates: start: 20140422, end: 20140425

REACTIONS (1)
  - Sensation of foreign body [Recovered/Resolved]
